FAERS Safety Report 11836280 (Version 1)
Quarter: 2015Q4

REPORT INFORMATION
  Report Type: Spontaneous
  Country: US (occurrence: US)
  Receive Date: 20151215
  Receipt Date: 20151215
  Transmission Date: 20160305
  Serious: No
  Sender: FDA-Public Use
  Company Number: US-TARO-2015TAR00399

PATIENT
  Age: 43 Year
  Sex: Male
  Weight: 63.49 kg

DRUGS (2)
  1. CLOBETASOL PROPIONATE TOPICAL SOLUTION USP 0.05% [Suspect]
     Active Substance: CLOBETASOL PROPIONATE
     Indication: ALOPECIA
     Dosage: 0.05 %, 1X/DAY
     Route: 061
     Dates: start: 20150423, end: 20150502
  2. UNSPECIFIED TOPICAL CREAM [Suspect]
     Active Substance: UNSPECIFIED INGREDIENT
     Indication: ALOPECIA
     Dosage: UNK
     Route: 061

REACTIONS (6)
  - Accidental exposure to product [Recovered/Resolved]
  - Eye irritation [Not Recovered/Not Resolved]
  - Off label use [Recovered/Resolved]
  - Vision blurred [Not Recovered/Not Resolved]
  - Impaired work ability [None]
  - Feeling abnormal [Not Recovered/Not Resolved]

NARRATIVE: CASE EVENT DATE: 20150423
